FAERS Safety Report 14381863 (Version 1)
Quarter: 2018Q1

REPORT INFORMATION
  Report Type: Spontaneous
  Country: US (occurrence: US)
  Receive Date: 20180111
  Receipt Date: 20180111
  Transmission Date: 20180509
  Serious: Yes (Other)
  Sender: FDA-Public Use
  Company Number: None

PATIENT
  Age: 69 Year
  Sex: Female
  Weight: 53.1 kg

DRUGS (12)
  1. METFORMIN [Concomitant]
     Active Substance: METFORMIN HYDROCHLORIDE
  2. LISINOPRIL. [Concomitant]
     Active Substance: LISINOPRIL
  3. AZELASTINE HYDROCHLORIDE. [Concomitant]
     Active Substance: AZELASTINE HYDROCHLORIDE
  4. ATORVASTATIN [Concomitant]
     Active Substance: ATORVASTATIN
  5. VITAMIN E [Concomitant]
     Active Substance: .ALPHA.-TOCOPHEROL
  6. KLOR-CON [Concomitant]
     Active Substance: POTASSIUM CHLORIDE
  7. MONTELUKAST [Concomitant]
     Active Substance: MONTELUKAST SODIUM
  8. CALCIUM [Concomitant]
     Active Substance: CALCIUM
  9. FLUTICASONE. [Concomitant]
     Active Substance: FLUTICASONE
  10. ATENOL/CHLOR [Concomitant]
     Active Substance: ATENOLOL\CHLORTHALIDONE
  11. LEVOTHYROXINE 88MCG TAB LANNETT. [Suspect]
     Active Substance: LEVOTHYROXINE SODIUM
  12. ARNUITY ELLIPTA [Concomitant]
     Active Substance: FLUTICASONE FUROATE

REACTIONS (8)
  - Sleep disorder [None]
  - Nervousness [None]
  - Dyspnoea [None]
  - Memory impairment [None]
  - Dizziness [None]
  - Alopecia [None]
  - Feeling cold [None]
  - Product substitution issue [None]

NARRATIVE: CASE EVENT DATE: 20171201
